FAERS Safety Report 20356161 (Version 1)
Quarter: 2022Q1

REPORT INFORMATION
  Report Type: Spontaneous
  Country: US (occurrence: None)
  Receive Date: 20220119
  Receipt Date: 20220119
  Transmission Date: 20220423
  Serious: No
  Sender: FDA-Public Use
  Company Number: None

PATIENT
  Age: 62 Year
  Sex: Female
  Weight: 97.65 kg

DRUGS (2)
  1. STELARA [Suspect]
     Active Substance: USTEKINUMAB
     Indication: Crohn^s disease
     Dosage: OTHER FREQUENCY : ONE TIME IV DOSE;?
     Route: 041
     Dates: start: 20220112, end: 20220112
  2. STELARA [Concomitant]
     Active Substance: USTEKINUMAB
     Dates: start: 20220112, end: 20220112

REACTIONS (4)
  - Hyperpyrexia [None]
  - Abdominal pain [None]
  - Pain [None]
  - Malaise [None]

NARRATIVE: CASE EVENT DATE: 20220119
